FAERS Safety Report 25728714 (Version 1)
Quarter: 2025Q3

REPORT INFORMATION
  Report Type: Spontaneous
  Country: JP (occurrence: JP)
  Receive Date: 20250826
  Receipt Date: 20250826
  Transmission Date: 20251020
  Serious: Yes (Hospitalization, Other)
  Sender: MERCK SHARP & DOHME LLC
  Company Number: JP-009507513-2322443

PATIENT
  Age: 52 Year
  Sex: Female

DRUGS (4)
  1. KEYTRUDA [Suspect]
     Active Substance: PEMBROLIZUMAB
     Indication: Cervix carcinoma stage IV
     Dosage: 200 MG ONCE EVERY 3 WEEKS
     Route: 041
     Dates: start: 20250514
  2. KEYTRUDA [Suspect]
     Active Substance: PEMBROLIZUMAB
     Indication: Cervix carcinoma stage IV
     Dosage: 200 MG ONCE EVERY 3 WEEKS
     Route: 041
     Dates: start: 20250604
  3. KEYTRUDA [Suspect]
     Active Substance: PEMBROLIZUMAB
     Indication: Cervix carcinoma stage IV
     Dosage: 200 MG ONCE EVERY 3 WEEKS
     Route: 041
     Dates: start: 202508
  4. CISPLATIN [Suspect]
     Active Substance: CISPLATIN
     Indication: Cervix carcinoma
     Dates: end: 2025

REACTIONS (7)
  - Pyometra [Unknown]
  - Blood phosphorus decreased [Recovering/Resolving]
  - Blood calcium decreased [Recovering/Resolving]
  - Pain [Unknown]
  - Gastroenteritis radiation [Unknown]
  - Blood magnesium decreased [Recovering/Resolving]
  - Infection [Recovered/Resolved]

NARRATIVE: CASE EVENT DATE: 20250101
